FAERS Safety Report 19974611 (Version 1)
Quarter: 2021Q4

REPORT INFORMATION
  Report Type: Spontaneous
  Country: IT (occurrence: IT)
  Receive Date: 20211020
  Receipt Date: 20211020
  Transmission Date: 20220304
  Serious: Yes (Other)
  Sender: FDA-Public Use
  Company Number: None

PATIENT
  Age: 43 Year
  Sex: Male

DRUGS (1)
  1. CIPROFLOXACIN [Suspect]
     Active Substance: CIPROFLOXACIN
     Indication: Urinary tract infection
     Dosage: 500 MG
     Route: 048
     Dates: start: 20210708, end: 20210713

REACTIONS (2)
  - Hypoacusis [Recovered/Resolved with Sequelae]
  - Auditory disorder [Recovered/Resolved with Sequelae]

NARRATIVE: CASE EVENT DATE: 20210710
